FAERS Safety Report 16823946 (Version 1)
Quarter: 2019Q3

REPORT INFORMATION
  Report Type: Spontaneous
  Country: US (occurrence: US)
  Receive Date: 20190918
  Receipt Date: 20190918
  Transmission Date: 20191005
  Serious: No
  Sender: FDA-Public Use
  Company Number: US-BAYER-2019-167775

PATIENT
  Age: 60 Year
  Sex: Female
  Weight: 91 kg

DRUGS (2)
  1. ALEVE BACK AND MUSCLE PAIN [Suspect]
     Active Substance: NAPROXEN SODIUM
     Indication: BACK PAIN
     Dosage: 2 DF
     Route: 048
     Dates: end: 20190910
  2. ALEVE [Suspect]
     Active Substance: NAPROXEN SODIUM
     Indication: PAIN
     Dosage: 2 DF, QD
     Route: 048
     Dates: end: 20190910

REACTIONS (2)
  - Product use issue [Unknown]
  - Therapeutic product effect incomplete [Unknown]
